FAERS Safety Report 4667237-8 (Version None)
Quarter: 2005Q2

REPORT INFORMATION
  Report Type: 
  Country: None (occurrence: None)
  Receive Date: 20050520
  Receipt Date: 20050318
  Transmission Date: 20051028
  Serious: No
  Sender: FDA-Public Use
  Company Number: US-BRISTOL-MYERS SQUIBB COMPANY-12903795

PATIENT
  Age: 61 Year
  Sex: Female
  Weight: 73 kg

DRUGS (2)
  1. SINEMET [Suspect]
     Indication: TREMOR
     Dosage: DURATION OF THERAPY:  5 TO 6 YEARS.
  2. SINEMET [Suspect]
     Indication: ASTHENIA
     Dosage: DURATION OF THERAPY:  5 TO 6 YEARS.

REACTIONS (1)
  - TREMOR [None]
